FAERS Safety Report 9546549 (Version 2)
Quarter: 2014Q1

REPORT INFORMATION
  Report Type: Spontaneous
  Country: US (occurrence: US)
  Receive Date: 20130923
  Receipt Date: 20140131
  Transmission Date: 20141002
  Serious: Yes (Hospitalization)
  Sender: FDA-Public Use
  Company Number: US-JNJFOC-20130909097

PATIENT
  Age: 41 Year
  Sex: Female
  Weight: 127 kg

DRUGS (19)
  1. IBUPROFEN [Suspect]
     Indication: MYALGIA
     Route: 065
  2. IBUPROFEN [Suspect]
     Indication: BONE PAIN
     Route: 065
  3. IBUPROFEN [Suspect]
     Indication: PAIN IN EXTREMITY
     Route: 065
  4. IBUPROFEN [Suspect]
     Indication: INFLUENZA
     Route: 065
  5. IBUPROFEN [Suspect]
     Indication: FATIGUE
     Route: 065
  6. IBUPROFEN [Suspect]
     Indication: PAIN
     Route: 065
  7. LASIX [Suspect]
     Indication: FLUID RETENTION
     Route: 065
  8. LASIX [Suspect]
     Indication: LOCAL SWELLING
     Route: 065
  9. LASIX [Suspect]
     Indication: LOCAL SWELLING
     Route: 065
  10. LYRICA [Suspect]
     Indication: FIBROMYALGIA
     Dosage: QDA
     Route: 048
  11. LYRICA [Suspect]
     Indication: FIBROMYALGIA
     Route: 048
     Dates: start: 20130828, end: 20130829
  12. LYRICA [Suspect]
     Indication: FIBROMYALGIA
     Route: 048
     Dates: start: 2013
  13. BACLOFEN [Concomitant]
     Indication: MUSCLE SPASMS
     Route: 065
  14. KLONOPIN [Concomitant]
     Indication: PANIC ATTACK
     Route: 065
  15. KLONOPIN [Concomitant]
     Indication: ANXIETY
     Route: 065
  16. LAMICTAL [Concomitant]
     Indication: MOOD ALTERED
     Route: 065
  17. LAMICTAL [Concomitant]
     Indication: BIPOLAR DISORDER
     Route: 065
  18. ZOLOFT [Concomitant]
     Indication: DEPRESSION
     Route: 065
  19. TRILEPTAL [Concomitant]
     Indication: BIPOLAR DISORDER
     Dosage: 600MG AT NIGHT AND 300MG IN MORNING
     Route: 065

REACTIONS (12)
  - Chest pain [Unknown]
  - Dyspnoea [Unknown]
  - Swelling [Unknown]
  - Blood triglycerides increased [Unknown]
  - Fatigue [Not Recovered/Not Resolved]
  - Myalgia [Not Recovered/Not Resolved]
  - Bone pain [Not Recovered/Not Resolved]
  - Pain in extremity [Not Recovered/Not Resolved]
  - Influenza [Not Recovered/Not Resolved]
  - Pain [Not Recovered/Not Resolved]
  - Blood potassium decreased [Unknown]
  - Drug ineffective [Unknown]
